FAERS Safety Report 7839648-0 (Version None)
Quarter: 2011Q4

REPORT INFORMATION
  Report Type: 
  Country: None (occurrence: None)
  Receive Date: 20111025
  Receipt Date: 20111012
  Transmission Date: 20120403
  Serious: Yes (Life-Threatening, Hospitalization)
  Sender: FDA-Public Use
  Company Number: DE-RANBAXY-2009RR-22786

PATIENT
  Age: 77 Year
  Sex: Male
  Weight: 83 kg

DRUGS (22)
  1. ALLOPURINOL [Concomitant]
     Indication: PRODUCT USED FOR UNKNOWN INDICATION
     Dosage: UNK
     Route: 065
     Dates: start: 20090212
  2. CLOPIDOGREL [Concomitant]
     Indication: PRODUCT USED FOR UNKNOWN INDICATION
     Route: 065
  3. GABAPENTIN [Suspect]
     Indication: PERIPHERAL ARTERIAL OCCLUSIVE DISEASE
     Dosage: 300 MG, BID
     Route: 048
     Dates: start: 20090103, end: 20090130
  4. FALITHROM [Concomitant]
     Indication: ATRIAL FIBRILLATION
     Dosage: 3 MG, QD
     Route: 048
     Dates: start: 19960101, end: 20090130
  5. SODIUM POLYSTYRENE SULFONATE [Concomitant]
     Indication: PRODUCT USED FOR UNKNOWN INDICATION
     Route: 065
  6. TRAMADOL HYDROCHLORIDE [Concomitant]
     Indication: PRODUCT USED FOR UNKNOWN INDICATION
     Dosage: UNK
     Route: 065
     Dates: start: 20090201
  7. FLUVASTATIN SODIUM [Concomitant]
     Indication: PRODUCT USED FOR UNKNOWN INDICATION
     Dosage: UNK
     Route: 065
     Dates: start: 20090209
  8. METOPROLOL SUCCINATE [Suspect]
     Indication: HYPERTENSION
     Dosage: 47.5 MG, QD
     Route: 048
     Dates: start: 19950101, end: 20090130
  9. BENAZEPRIL HYDROCHLORIDE [Suspect]
     Indication: HYPERTENSION
     Dosage: 1 DF, QD
     Route: 048
     Dates: start: 20080501, end: 20090130
  10. BENZBROMARONE AL [Suspect]
     Indication: GOUT
     Dosage: 100 MG, QD
     Route: 048
     Dates: start: 20090103, end: 20090130
  11. PHENPROCOUMON [Concomitant]
     Indication: PRODUCT USED FOR UNKNOWN INDICATION
  12. TORSEMIDE [Suspect]
     Indication: RENAL IMPAIRMENT
     Dosage: 20 MG, QD
     Route: 048
     Dates: start: 20090125
  13. LOVASTATIN [Concomitant]
     Indication: DYSLIPIDAEMIA
     Dosage: 20 MG, QD
     Route: 048
     Dates: start: 20070401, end: 20090129
  14. HEPARIN [Concomitant]
     Indication: PRODUCT USED FOR UNKNOWN INDICATION
     Route: 065
  15. RAMIPRIL [Concomitant]
     Indication: PRODUCT USED FOR UNKNOWN INDICATION
     Dosage: UNK
     Route: 065
     Dates: start: 20090208
  16. CLOPIDOGREL BISULFATE [Concomitant]
     Indication: PRODUCT USED FOR UNKNOWN INDICATION
     Dosage: UNK
     Route: 065
     Dates: start: 20090201
  17. ARCOXIA [Suspect]
     Indication: PAIN IN EXTREMITY
     Dosage: 90 MG, QD
     Route: 048
     Dates: start: 20090123, end: 20090130
  18. DIGITOXIN TAB [Suspect]
     Indication: ATRIAL FIBRILLATION
     Dosage: 0.07 MG, QD
     Route: 048
     Dates: start: 20070401, end: 20090129
  19. SPIRONOLACTONE [Suspect]
     Indication: OEDEMA PERIPHERAL
     Dosage: 25 MG, QD
     Route: 048
     Dates: start: 20081201, end: 20090129
  20. XIPAMIDE [Suspect]
     Indication: HYPERTENSION
     Dosage: 40 MG, QD
     Route: 048
     Dates: start: 20081201, end: 20090129
  21. FLUVASTATIN [Concomitant]
     Indication: PRODUCT USED FOR UNKNOWN INDICATION
     Route: 065
  22. ENOXAPARIN SODIUM [Concomitant]
     Indication: PRODUCT USED FOR UNKNOWN INDICATION
     Dosage: UNK
     Route: 065
     Dates: start: 20090201

REACTIONS (7)
  - DIARRHOEA [None]
  - RENAL FAILURE ACUTE [None]
  - DRUG INTERACTION [None]
  - PROSTATOMEGALY [None]
  - GOUTY ARTHRITIS [None]
  - DIALYSIS [None]
  - PAIN IN EXTREMITY [None]
